APPROVED DRUG PRODUCT: DISOPYRAMIDE PHOSPHATE
Active Ingredient: DISOPYRAMIDE PHOSPHATE
Strength: EQ 100MG BASE
Dosage Form/Route: CAPSULE;ORAL
Application: A070351 | Product #001
Applicant: SUN PHARMACEUTICAL INDUSTRIES INC
Approved: Dec 17, 1985 | RLD: No | RS: No | Type: DISCN